FAERS Safety Report 25407392 (Version 2)
Quarter: 2025Q2

REPORT INFORMATION
  Report Type: Report from Study
  Country: IT (occurrence: IT)
  Receive Date: 20250606
  Receipt Date: 20250613
  Transmission Date: 20250717
  Serious: Yes (Life-Threatening, Hospitalization, Other)
  Sender: MYLAN
  Company Number: IT-STADA-01399042

PATIENT
  Age: 76 Year
  Sex: Male
  Weight: 89 kg

DRUGS (18)
  1. LENALIDOMIDE [Suspect]
     Active Substance: LENALIDOMIDE
     Indication: Neoplasm malignant
     Dosage: 25 MILLIGRAM, QD (1X PER DAY)
     Dates: start: 20221107, end: 20221122
  2. LENALIDOMIDE [Suspect]
     Active Substance: LENALIDOMIDE
     Dosage: 20 MILLIGRAM, QD
     Dates: start: 20221124
  3. LENALIDOMIDE [Suspect]
     Active Substance: LENALIDOMIDE
  4. TAFASITAMAB [Suspect]
     Active Substance: TAFASITAMAB
     Indication: Neoplasm malignant
     Dates: start: 20221107, end: 20221122
  5. TAFASITAMAB [Suspect]
     Active Substance: TAFASITAMAB
  6. RITUXIMAB [Suspect]
     Active Substance: RITUXIMAB
     Indication: Neoplasm malignant
     Dates: start: 20221107
  7. CYCLOPHOSPHAMIDE [Suspect]
     Active Substance: CYCLOPHOSPHAMIDE
     Indication: Diffuse large B-cell lymphoma
     Dates: start: 20221107, end: 20221107
  8. CYCLOPHOSPHAMIDE [Suspect]
     Active Substance: CYCLOPHOSPHAMIDE
     Indication: Neoplasm malignant
  9. DOXORUBICIN [Suspect]
     Active Substance: DOXORUBICIN
     Indication: Neoplasm malignant
     Dates: start: 20221107, end: 20221107
  10. VINCRISTINE [Suspect]
     Active Substance: VINCRISTINE
     Indication: Neoplasm malignant
     Dates: start: 20221107, end: 20221107
  11. PREDNISOLONE [Suspect]
     Active Substance: PREDNISOLONE
     Indication: Neoplasm malignant
     Dosage: 100 MILLIGRAM, QD (1X PER DAY)
     Dates: start: 20221107
  12. FENTANYL [Concomitant]
     Active Substance: FENTANYL
     Indication: Product used for unknown indication
  13. SULFAMETHOXAZOLE\TRIMETHOPRIM [Concomitant]
     Active Substance: SULFAMETHOXAZOLE\TRIMETHOPRIM
     Indication: Product used for unknown indication
  14. OMEPRAZOLE [Concomitant]
     Active Substance: OMEPRAZOLE
  15. ALLOPURINOL [Concomitant]
     Active Substance: ALLOPURINOL
  16. ERYTHROPOIETIN [Concomitant]
     Active Substance: ERYTHROPOIETIN
  17. ENOXAPARIN [Concomitant]
     Active Substance: ENOXAPARIN
  18. ACYCLOVIR [Concomitant]
     Active Substance: ACYCLOVIR

REACTIONS (5)
  - Febrile neutropenia [Recovered/Resolved]
  - Inflammation [Recovered/Resolved]
  - Pyrexia [Recovered/Resolved]
  - Influenza A virus test positive [Unknown]
  - Off label use [Unknown]

NARRATIVE: CASE EVENT DATE: 20221116
